FAERS Safety Report 22082271 (Version 2)
Quarter: 2023Q2

REPORT INFORMATION
  Report Type: Spontaneous
  Country: BR (occurrence: BR)
  Receive Date: 20230310
  Receipt Date: 20230501
  Transmission Date: 20230722
  Serious: Yes (Death, Hospitalization, Other)
  Sender: FDA-Public Use
  Company Number: BR-009507513-2303BRA001903

PATIENT
  Age: 69 Year
  Sex: Female
  Weight: 88 kg

DRUGS (7)
  1. TEMODAL [Suspect]
     Active Substance: TEMOZOLOMIDE
     Indication: Bronchial carcinoma
     Dosage: TEMODAL 5 MG AND TEMODAL 20 MG, TOTAL DAILY DOSE WAS 90 MG
     Route: 048
     Dates: end: 202301
  2. TEMODAL [Suspect]
     Active Substance: TEMOZOLOMIDE
     Indication: Bronchial carcinoma
     Dosage: TEMODAL 5 MG AND TEMODAL 20 MG, TOTAL DAILY DOSE WAS 90 MG
     Route: 048
     Dates: end: 202301
  3. TEMODAL [Suspect]
     Active Substance: TEMOZOLOMIDE
     Dosage: TABLET OF 250 MG + 01 TABLET OF 20 MG, TOTAL DAILY DOSE WAS 270 MG
     Route: 048
     Dates: start: 202303
  4. TEMODAL [Suspect]
     Active Substance: TEMOZOLOMIDE
     Indication: Bronchial carcinoma
     Dosage: 1 TABLET OF 250 MG + 01 TABLET OF 20 MG, TOTAL DAILY DOSE WAS 270 MG
     Route: 048
     Dates: start: 202303
  5. CHOLECALCIFEROL [Concomitant]
     Active Substance: CHOLECALCIFEROL
     Dosage: 1000 IU 12 DROPS DAILY||QD
  6. FISH OIL\OMEGA-3 FATTY ACIDS [Concomitant]
     Active Substance: FISH OIL\OMEGA-3 FATTY ACIDS
     Dosage: 1000 MG, 2 CAPSULES DAILY||QD
  7. MAGNESIUM [Concomitant]
     Active Substance: MAGNESIUM
     Dosage: 500 IU, 1 CAPSULE DAILY||QD

REACTIONS (5)
  - Malignant neoplasm progression [Fatal]
  - Platelet count increased [Unknown]
  - Brain oedema [Unknown]
  - Arrhythmia [Unknown]
  - Product use in unapproved indication [Unknown]

NARRATIVE: CASE EVENT DATE: 20230103
